FAERS Safety Report 7970503-1 (Version None)
Quarter: 2011Q4

REPORT INFORMATION
  Report Type: 
  Country: None (occurrence: None)
  Receive Date: 20111212
  Receipt Date: 20110418
  Transmission Date: 20120403
  Serious: No
  Sender: FDA-Public Use
  Company Number: US-ABBOTT-11P-163-0720735-00

PATIENT
  Sex: Female
  Weight: 54.48 kg

DRUGS (2)
  1. VICODIN ES [Suspect]
     Indication: HEADACHE
     Dosage: ES
     Route: 048
     Dates: start: 20040101
  2. IMITREX [Concomitant]
     Indication: HEADACHE
     Route: 048

REACTIONS (1)
  - DRUG INEFFECTIVE [None]
